FAERS Safety Report 18533930 (Version 2)
Quarter: 2020Q4

REPORT INFORMATION
  Report Type: Spontaneous
  Country: US (occurrence: US)
  Receive Date: 20201123
  Receipt Date: 20201124
  Transmission Date: 20210114
  Serious: Yes (Other)
  Sender: FDA-Public Use
  Company Number: US-BRACCO-2019US06402

PATIENT
  Age: 50 Year
  Sex: Female

DRUGS (2)
  1. LUMASON [Suspect]
     Active Substance: SULFUR HEXAFLUORIDE
     Indication: STRESS ECHOCARDIOGRAM
     Dosage: 2 ML
     Route: 042
     Dates: start: 20191126, end: 20191126
  2. SALINE                             /00075401/ [Concomitant]
     Active Substance: SODIUM CHLORIDE
     Dosage: 5 ML
     Route: 042
     Dates: start: 20191126, end: 20191126

REACTIONS (4)
  - Oxygen saturation decreased [Recovered/Resolved]
  - Paraesthesia oral [Recovered/Resolved]
  - Wheezing [Recovered/Resolved]
  - Cough [Recovered/Resolved]

NARRATIVE: CASE EVENT DATE: 20191126
